FAERS Safety Report 12732324 (Version 1)
Quarter: 2016Q3

REPORT INFORMATION
  Report Type: Spontaneous
  Country: US (occurrence: US)
  Receive Date: 20160912
  Receipt Date: 20160912
  Transmission Date: 20161109
  Serious: Yes (Hospitalization)
  Sender: FDA-Public Use
  Company Number: US-JNJFOC-20160711586

PATIENT
  Age: 79 Year
  Sex: Female
  Weight: 81.65 kg

DRUGS (3)
  1. XARELTO [Suspect]
     Active Substance: RIVAROXABAN
     Indication: ATRIAL FIBRILLATION
     Dosage: APPROXIMATELY 10-20 MG
     Route: 048
     Dates: start: 20131101, end: 20140924
  2. XARELTO [Suspect]
     Active Substance: RIVAROXABAN
     Indication: CEREBROVASCULAR ACCIDENT PROPHYLAXIS
     Dosage: APPROXIMATELY 10-20 MG
     Route: 048
     Dates: start: 20131101, end: 20140924
  3. XARELTO [Suspect]
     Active Substance: RIVAROXABAN
     Indication: THROMBOSIS PROPHYLAXIS
     Dosage: APPROXIMATELY 10-20 MG
     Route: 048
     Dates: start: 20131101, end: 20140924

REACTIONS (2)
  - Vaginal haemorrhage [Recovering/Resolving]
  - Rectal ulcer haemorrhage [Recovering/Resolving]

NARRATIVE: CASE EVENT DATE: 20140827
